FAERS Safety Report 5777979-9 (Version None)
Quarter: 2008Q2

REPORT INFORMATION
  Report Type: 
  Country: None (occurrence: None)
  Receive Date: 20080617
  Receipt Date: 20080602
  Transmission Date: 20081010
  Serious: Yes (Hospitalization)
  Sender: FDA-Public Use
  Company Number: 2008PV035581

PATIENT
  Age: 76 Year
  Sex: Male
  Weight: 108.8633 kg

DRUGS (17)
  1. SYMLIN [Suspect]
     Indication: TYPE 2 DIABETES MELLITUS
     Dosage: SEE IMAGE
     Route: 058
  2. SYMLIN [Suspect]
     Indication: TYPE 2 DIABETES MELLITUS
     Dosage: 120 MCG;TID;SC, 30 MCG;TID;SC
     Route: 058
     Dates: start: 20050714
  3. SYMLIN [Suspect]
     Indication: TYPE 2 DIABETES MELLITUS
     Dosage: 120 MCG;TID;SC, 30 MCG;TID;SC
     Route: 058
     Dates: start: 20080101
  4. MIACALCIN [Concomitant]
  5. FISH OIL [Concomitant]
  6. ACTOS [Concomitant]
  7. PRANDIN [Concomitant]
  8. NOVOLOG [Concomitant]
  9. LANTUS [Concomitant]
  10. SYNTHROID [Concomitant]
  11. NIASPAN [Concomitant]
  12. LIPITOR [Concomitant]
  13. TOPROL-XL [Concomitant]
  14. FLOMAX [Concomitant]
  15. ALTACE [Concomitant]
  16. NORVASC [Concomitant]
  17. VITAMINS [Concomitant]

REACTIONS (2)
  - INJURY [None]
  - OSTEOARTHRITIS [None]
